FAERS Safety Report 19352887 (Version 2)
Quarter: 2021Q2

REPORT INFORMATION
  Report Type: Spontaneous
  Country: US (occurrence: US)
  Receive Date: 20210601
  Receipt Date: 20210611
  Transmission Date: 20210717
  Serious: No
  Sender: FDA-Public Use
  Company Number: US-LUPIN PHARMACEUTICALS INC.-2021-08173

PATIENT
  Sex: Female
  Weight: 61.22 kg

DRUGS (1)
  1. LISINOPRIL TABLETS USP, 2.5MG [Suspect]
     Active Substance: LISINOPRIL
     Indication: HYPERTENSION
     Dosage: 2.5 MILLIGRAM, QD
     Route: 048
     Dates: start: 202102, end: 202102

REACTIONS (3)
  - Palpitations [Not Recovered/Not Resolved]
  - Feeling abnormal [Recovered/Resolved]
  - Colitis [Unknown]

NARRATIVE: CASE EVENT DATE: 2021
